FAERS Safety Report 4928205-1 (Version None)
Quarter: 2006Q1

REPORT INFORMATION
  Report Type: 
  Country: None (occurrence: None)
  Receive Date: 20060223
  Receipt Date: 20051125
  Transmission Date: 20060701
  Serious: Yes (Hospitalization)
  Sender: FDA-Public Use
  Company Number: ZA200511001822

PATIENT
  Age: 71 Year
  Sex: Female

DRUGS (5)
  1. EVISTA [Suspect]
     Indication: OSTEOPOROSIS
     Dosage: 60 MG, DAILY (1/D), ORAL
     Route: 048
     Dates: start: 19990720, end: 20051101
  2. COZAAR (LOSAETAN POTASSIUM) [Concomitant]
  3. RAVAMIL - SLOW RELEASE (VERAPAMIL HYDROCHLORIDE) [Concomitant]
  4. WARFARIN SODIUM [Concomitant]
  5. CALCIUM W/VITAMIN D NOS (CALCIUM, VITAMIN D NOS) [Concomitant]

REACTIONS (1)
  - BREAST CANCER FEMALE [None]
